FAERS Safety Report 5624574-8 (Version None)
Quarter: 2008Q1

REPORT INFORMATION
  Report Type: 
  Country: None (occurrence: None)
  Receive Date: 20080208
  Receipt Date: 20080208
  Transmission Date: 20080703
  Serious: Yes (Hospitalization)
  Sender: FDA-Public Use
  Company Number: None

PATIENT
  Sex: Female
  Weight: 96.6 kg

DRUGS (4)
  1. CYTARABINE [Suspect]
     Dosage: 16160 MG
  2. MYLOTARG [Suspect]
     Dosage: 61.5 MG
  3. NEUPOGEN [Concomitant]
  4. FLUDARABINE [Concomitant]

REACTIONS (13)
  - ACUTE MONOCYTIC LEUKAEMIA [None]
  - ACUTE RESPIRATORY DISTRESS SYNDROME [None]
  - BACK PAIN [None]
  - BRADYCARDIA [None]
  - CHEST DISCOMFORT [None]
  - COMPLEX PARTIAL SEIZURES [None]
  - CULTURE POSITIVE [None]
  - ENTEROCOCCAL INFECTION [None]
  - FUNGAL INFECTION [None]
  - HYPOTENSION [None]
  - MENINGITIS [None]
  - NUCLEAR MAGNETIC RESONANCE IMAGING BRAIN ABNORMAL [None]
  - SPLENIC LESION [None]
